FAERS Safety Report 17224715 (Version 1)
Quarter: 2020Q1

REPORT INFORMATION
  Report Type: Spontaneous
  Country: IT (occurrence: IT)
  Receive Date: 20200102
  Receipt Date: 20200102
  Transmission Date: 20200409
  Serious: Yes (Disabling, Other)
  Sender: FDA-Public Use
  Company Number: IT-HIKMA PHARMACEUTICALS USA INC.-IT-H14001-19-50258

PATIENT
  Age: 43 Year
  Sex: Female

DRUGS (1)
  1. CIPROFLOXACIN. [Suspect]
     Active Substance: CIPROFLOXACIN
     Indication: COUGH
     Route: 065
     Dates: start: 20190201, end: 20190207

REACTIONS (6)
  - Muscular weakness [Unknown]
  - Tendon disorder [Not Recovered/Not Resolved]
  - Gait disturbance [Unknown]
  - Vitamin B6 increased [Not Recovered/Not Resolved]
  - Fatigue [Unknown]
  - Impaired quality of life [Unknown]

NARRATIVE: CASE EVENT DATE: 2019
